FAERS Safety Report 7905820-4 (Version None)
Quarter: 2011Q4

REPORT INFORMATION
  Report Type: 
  Country: None (occurrence: None)
  Receive Date: 20111108
  Receipt Date: 20110930
  Transmission Date: 20120403
  Serious: Yes (Hospitalization)
  Sender: FDA-Public Use
  Company Number: C-11-032

PATIENT
  Age: 42 Year
  Sex: Female

DRUGS (5)
  1. OXYCODONE HYDROCHLORIDE [Suspect]
     Indication: PAIN MANAGEMENT
     Dosage: 10MG-TID-ORAL
     Route: 048
  2. CARBERGOLINE [Concomitant]
  3. ZONISAMIDE [Concomitant]
  4. PROCHLORPERAZINE [Concomitant]
  5. METHOCARBAMOL [Concomitant]

REACTIONS (1)
  - DRUG INEFFECTIVE [None]
